FAERS Safety Report 10236894 (Version 2)
Quarter: 2014Q2

REPORT INFORMATION
  Report Type: Spontaneous
  Country: DK (occurrence: DK)
  Receive Date: 20140613
  Receipt Date: 20140613
  Transmission Date: 20141212
  Serious: Yes (Disabling)
  Sender: FDA-Public Use
  Company Number: DK-BAXTER-2014BAX026832

PATIENT
  Sex: Female

DRUGS (7)
  1. SENDOXAN [Suspect]
     Indication: CHEMOTHERAPY
     Route: 065
     Dates: start: 20101215, end: 20101215
  2. SENDOXAN [Suspect]
     Route: 065
     Dates: start: 20110117, end: 20110117
  3. SENDOXAN [Suspect]
     Route: 065
     Dates: start: 20110228, end: 20110228
  4. EPIRUBICIN EBEWE [Suspect]
     Indication: CHEMOTHERAPY
     Route: 065
     Dates: start: 20101215, end: 20101215
  5. EPIRUBICIN EBEWE [Suspect]
     Route: 065
     Dates: start: 20110117, end: 20110117
  6. EPIRUBICIN EBEWE [Suspect]
     Route: 065
     Dates: start: 20110228, end: 20110228
  7. TAXOTERE [Suspect]
     Indication: CHEMOTHERAPY
     Dosage: 5 TIMES
     Route: 065
     Dates: start: 2011

REACTIONS (2)
  - Ageusia [Not Recovered/Not Resolved]
  - Anosmia [Not Recovered/Not Resolved]
